FAERS Safety Report 5310211-9 (Version None)
Quarter: 2007Q2

REPORT INFORMATION
  Report Type: 
  Country: None (occurrence: None)
  Receive Date: 20070423
  Receipt Date: 20070411
  Transmission Date: 20071010
  Serious: Yes (Life-Threatening)
  Sender: FDA-Public Use
  Company Number: GXKR2007TG03336

PATIENT
  Age: 45 Year
  Sex: Female

DRUGS (3)
  1. TRAMADOL HCL [Suspect]
     Dosage: 50 MG, ONCE/SINGLE, INTRATHCEL
     Route: 037
  2. BUPIVACAINE [Concomitant]
  3. NIFEDIPINE [Concomitant]

REACTIONS (4)
  - APNOEA [None]
  - HYPERTENSION [None]
  - RESPIRATORY DEPRESSION [None]
  - TACHYCARDIA [None]
